FAERS Safety Report 19433217 (Version 1)
Quarter: 2021Q2

REPORT INFORMATION
  Report Type: Report from Study
  Country: US (occurrence: US)
  Receive Date: 20210618
  Receipt Date: 20210618
  Transmission Date: 20210717
  Serious: Yes (Death)
  Sender: FDA-Public Use
  Company Number: US-TAIHO ONCOLOGY  INC-EU-2021-01884

PATIENT
  Age: 74 Year
  Sex: Female
  Weight: 52.66 kg

DRUGS (15)
  1. DEXAMETHAZONE [Concomitant]
     Active Substance: DEXAMETHASONE
  2. MEGESTROL [Concomitant]
     Active Substance: MEGESTROL
  3. LONSURF [Suspect]
     Active Substance: TIPIRACIL HYDROCHLORIDE\TRIFLURIDINE
     Indication: GASTRIC CANCER
     Dosage: CYCLE 1
     Route: 048
     Dates: start: 20210521
  4. COLACE [Concomitant]
     Active Substance: DOCUSATE SODIUM
  5. PROCRIT [Concomitant]
     Active Substance: ERYTHROPOIETIN
  6. DICYCLOMINE [Concomitant]
     Active Substance: DICYCLOMINE HYDROCHLORIDE
  7. LOPERAMIDE HCL [Concomitant]
     Active Substance: LOPERAMIDE HYDROCHLORIDE
  8. NORCO [Concomitant]
     Active Substance: ACETAMINOPHEN\HYDROCODONE BITARTRATE
  9. CORTIZONE 10 [Concomitant]
     Active Substance: HYDROCORTISONE
  10. LEVOFLOXACIN. [Concomitant]
     Active Substance: LEVOFLOXACIN
  11. MS CONTIN [Concomitant]
     Active Substance: MORPHINE SULFATE
  12. MILK OF MAGNESIA [Concomitant]
     Active Substance: MAGNESIUM HYDROXIDE
  13. PACLITAXEL. [Concomitant]
     Active Substance: PACLITAXEL
  14. CYRAMZA [Concomitant]
     Active Substance: RAMUCIRUMAB
  15. ONDANSETRON [Concomitant]
     Active Substance: ONDANSETRON

REACTIONS (1)
  - Death [Fatal]

NARRATIVE: CASE EVENT DATE: 2021
